FAERS Safety Report 5481106-5 (Version None)
Quarter: 2007Q4

REPORT INFORMATION
  Report Type: 
  Country: None (occurrence: None)
  Receive Date: 20071003
  Receipt Date: 20061211
  Transmission Date: 20080405
  Serious: Yes (Hospitalization)
  Sender: FDA-Public Use
  Company Number: 6028092

PATIENT
  Age: 14 Year
  Sex: Female

DRUGS (3)
  1. SERTRALINE [Suspect]
     Indication: OBSESSIVE-COMPULSIVE DISORDER
     Dosage: 25,000 MG (25 MG, 1 IN 1 D); 200,000 MG (200 MG, 1 IN 1 D); 62,000 MG (62 MG, 1 IN 1 D)
  2. OLANZAPINE [Concomitant]
  3. LORAZEPAM [Concomitant]

REACTIONS (4)
  - ANTIDEPRESSANT DRUG LEVEL INCREASED [None]
  - CYTOGENETIC ABNORMALITY [None]
  - GRAND MAL CONVULSION [None]
  - LOSS OF CONSCIOUSNESS [None]
